FAERS Safety Report 10228962 (Version 1)
Quarter: 2014Q2

REPORT INFORMATION
  Report Type: Spontaneous
  Country: US (occurrence: US)
  Receive Date: 20140610
  Receipt Date: 20140610
  Transmission Date: 20141212
  Serious: Yes (Hospitalization)
  Sender: FDA-Public Use
  Company Number: US-B.I. PHARMACEUTICALS,INC./RIDGEFIELD-2014-BI-25546BP

PATIENT
  Age: 71 Year
  Sex: Female

DRUGS (7)
  1. SPIRIVA [Suspect]
     Indication: CHRONIC OBSTRUCTIVE PULMONARY DISEASE
     Dosage: 18 MCG
     Route: 055
     Dates: start: 2011
  2. SPIRIVA [Suspect]
     Dosage: 18 MCG
     Route: 048
     Dates: start: 20140605, end: 20140605
  3. COMBIVENT [Concomitant]
     Indication: CHRONIC OBSTRUCTIVE PULMONARY DISEASE
     Dosage: STRENGTH: 20MCG/100MCG; DAILY DOSE: 80MCG/400MCG
     Route: 055
     Dates: start: 2011
  4. WARFARIN [Concomitant]
     Indication: ANTICOAGULANT THERAPY
     Dosage: 5 MG
     Route: 048
     Dates: start: 2011
  5. WARFARIN [Concomitant]
     Dosage: 2.5 MG
     Route: 048
     Dates: start: 2011
  6. WELLBUTRIN [Concomitant]
     Indication: DEPRESSION
     Dosage: 300 MG
     Route: 048
     Dates: start: 20140519
  7. LORAZEPAM [Concomitant]
     Indication: ANXIETY
     Route: 048
     Dates: start: 201403

REACTIONS (5)
  - Pulmonary embolism [Recovered/Resolved]
  - Cataract [Not Recovered/Not Resolved]
  - Clostridium difficile infection [Recovered/Resolved]
  - Benign uterine neoplasm [Recovered/Resolved]
  - Incorrect route of drug administration [Recovered/Resolved]
